FAERS Safety Report 8831519 (Version 2)
Quarter: 2013Q4

REPORT INFORMATION
  Report Type: Spontaneous
  Country: US (occurrence: US)
  Receive Date: 20121009
  Receipt Date: 20131031
  Transmission Date: 20140711
  Serious: Yes (Life-Threatening, Other)
  Sender: FDA-Public Use
  Company Number: US-ASTRAZENECA-2012SE76204

PATIENT
  Age: 547 Month
  Sex: Female
  Weight: 68 kg

DRUGS (9)
  1. ZOMIG [Suspect]
     Indication: MIGRAINE
     Route: 048
     Dates: start: 201204, end: 201209
  2. ZOMIG [Suspect]
     Indication: MIGRAINE
     Route: 048
     Dates: start: 201209, end: 201209
  3. ZOMIG [Suspect]
     Indication: MIGRAINE
     Route: 045
     Dates: start: 201209
  4. ZOMIG [Suspect]
     Indication: MIGRAINE
     Dosage: THREE TIMES A DAY
     Route: 048
  5. ZOMIG [Suspect]
     Indication: MIGRAINE
     Route: 048
  6. GABAPENTIN [Concomitant]
     Indication: NEUROPATHY PERIPHERAL
     Route: 048
  7. GABAPENTIN [Concomitant]
     Indication: NEUROPATHY PERIPHERAL
     Route: 048
  8. VERAPAMIL [Concomitant]
  9. BIRTH CONTROL PILLS [Concomitant]
     Indication: UTERINE LEIOMYOMA

REACTIONS (6)
  - Anaphylactic shock [Unknown]
  - Hypersensitivity [Unknown]
  - Erythema [Recovered/Resolved]
  - Burning sensation mucosal [Unknown]
  - Burning sensation [Recovered/Resolved]
  - Drug ineffective [Unknown]
